FAERS Safety Report 4464157-9 (Version None)
Quarter: 2004Q3

REPORT INFORMATION
  Report Type: 
  Country: None (occurrence: None)
  Receive Date: 20040930
  Receipt Date: 20040930
  Transmission Date: 20050211
  Serious: Yes (Other)
  Sender: FDA-Public Use
  Company Number: None

PATIENT
  Sex: Male
  Weight: 63.9572 kg

DRUGS (1)
  1. ZOFRAN [Suspect]
     Indication: VOMITING
     Dosage: 4 MG   EVERY 30 MIN.  INTRAVENOUS
     Route: 042
     Dates: start: 20040928, end: 20040928

REACTIONS (2)
  - DRUG INEFFECTIVE [None]
  - PHARMACEUTICAL PRODUCT COMPLAINT [None]
